FAERS Safety Report 4902881-1 (Version None)
Quarter: 2006Q1

REPORT INFORMATION
  Report Type: 
  Country: None (occurrence: None)
  Receive Date: 20060207
  Receipt Date: 20060124
  Transmission Date: 20060701
  Serious: Yes (Death, Other)
  Sender: FDA-Public Use
  Company Number: NL-BOEHRINGER INGELHEIM PHARMACEUTICALS, INC.-2006-DE-00391GD

PATIENT
  Age: 52 Year
  Sex: Female

DRUGS (22)
  1. PARACETAMOL [Suspect]
     Indication: NEURALGIA
  2. PARACETAMOL [Suspect]
     Indication: CANCER PAIN
  3. MORPHINE [Suspect]
     Indication: NEURALGIA
  4. MORPHINE [Suspect]
     Indication: CANCER PAIN
  5. MORPHINE [Suspect]
     Route: 037
  6. MORPHINE [Suspect]
     Route: 037
  7. MORPHINE [Suspect]
     Route: 037
  8. CLONIDINE [Suspect]
     Indication: NEURALGIA
     Route: 037
  9. CLONIDINE [Suspect]
     Indication: CANCER PAIN
     Route: 037
  10. METHADONE [Suspect]
     Indication: NEURALGIA
  11. METHADONE [Suspect]
     Indication: CANCER PAIN
  12. AMITRIPTYLINE HCL [Suspect]
     Indication: NEURALGIA
  13. AMITRIPTYLINE HCL [Suspect]
     Indication: CANCER PAIN
  14. GABAPENTIN [Suspect]
     Indication: NEURALGIA
  15. GABAPENTIN [Suspect]
     Indication: CANCER PAIN
  16. FENTANYL [Suspect]
     Indication: NEURALGIA
     Route: 062
  17. FENTANYL [Suspect]
     Indication: CANCER PAIN
  18. BUPIVACAINE [Suspect]
     Indication: NEURALGIA
     Route: 037
  19. BUPIVACAINE [Suspect]
     Indication: CANCER PAIN
  20. KETANEST [Suspect]
     Indication: NEURALGIA
     Route: 037
  21. KETANEST [Suspect]
     Indication: CANCER PAIN
     Route: 037
  22. KETANEST [Suspect]
     Route: 037

REACTIONS (16)
  - ABDOMINAL PAIN [None]
  - ABDOMINAL PAIN LOWER [None]
  - ASTHENIA [None]
  - CERVIX CARCINOMA RECURRENT [None]
  - DRUG INEFFECTIVE [None]
  - EUTHANASIA [None]
  - MEDICAL DEVICE COMPLICATION [None]
  - METASTASES TO LYMPH NODES [None]
  - NAUSEA [None]
  - PAIN IN EXTREMITY [None]
  - REFUSAL OF TREATMENT BY PATIENT [None]
  - SMALL INTESTINAL PERFORATION [None]
  - SPINAL CORD INJURY [None]
  - SQUAMOUS CELL CARCINOMA [None]
  - SUBARACHNOID HAEMORRHAGE [None]
  - VOMITING [None]
